FAERS Safety Report 7872749-X (Version None)
Quarter: 2011Q4

REPORT INFORMATION
  Report Type: 
  Country: None (occurrence: None)
  Receive Date: 20111030
  Receipt Date: 20110420
  Transmission Date: 20120403
  Serious: No
  Sender: FDA-Public Use
  Company Number: US-AMGEN-USASP2011015475

PATIENT
  Age: 14 Year
  Sex: Female
  Weight: 58.05 kg

DRUGS (1)
  1. ENBREL [Suspect]
     Indication: JUVENILE ARTHRITIS
     Dosage: 50 MG, QWK
     Route: 058
     Dates: start: 20061020

REACTIONS (6)
  - LIMB INJURY [None]
  - INGROWING NAIL [None]
  - LACERATION [None]
  - PNEUMONIA [None]
  - BRONCHITIS [None]
  - LOCALISED INFECTION [None]
